FAERS Safety Report 12977400 (Version 2)
Quarter: 2017Q3

REPORT INFORMATION
  Report Type: Spontaneous
  Country: US (occurrence: US)
  Receive Date: 20161128
  Receipt Date: 20170828
  Transmission Date: 20171127
  Serious: Yes (Other)
  Sender: FDA-Public Use
  Company Number: US-BRISTOL-MYERS SQUIBB COMPANY-BMS-2016-099511

PATIENT
  Sex: Male
  Weight: 79.37 kg

DRUGS (1)
  1. OPDIVO [Suspect]
     Active Substance: NIVOLUMAB
     Indication: RENAL CELL CARCINOMA
     Dosage: UNK UNK, Q2WK
     Route: 042
     Dates: start: 201608, end: 20161117

REACTIONS (10)
  - Peripheral swelling [Unknown]
  - Myalgia [Unknown]
  - Malignant neoplasm progression [Unknown]
  - Weight decreased [Unknown]
  - Alopecia [Unknown]
  - Haemorrhage [Unknown]
  - Somnolence [Unknown]
  - Arthralgia [Unknown]
  - Product use in unapproved indication [Unknown]
  - Contusion [Unknown]
